FAERS Safety Report 5068456-1 (Version None)
Quarter: 2006Q3

REPORT INFORMATION
  Report Type: 
  Country: None (occurrence: None)
  Receive Date: 20060802
  Receipt Date: 20051006
  Transmission Date: 20061208
  Serious: Yes (Other)
  Sender: FDA-Public Use
  Company Number: US-BRISTOL-MYERS SQUIBB COMPANY-13136122

PATIENT
  Age: 46 Year
  Sex: Female
  Weight: 74 kg

DRUGS (9)
  1. COUMADIN [Suspect]
     Dosage: 5 MG AS OF 2000; 7MG, 1X'S WEEKLY FROM 2003 TO ONGOING
     Route: 048
     Dates: start: 20000101
  2. METHOTREXATE [Suspect]
     Indication: PULMONARY SARCOIDOSIS
     Dosage: 2.5 MG TABLET; 7.5 MG DOSE
     Route: 048
     Dates: start: 20040816
  3. VERAPAMIL [Concomitant]
  4. DYAZIDE [Concomitant]
  5. SINGULAIR [Concomitant]
  6. PREDNISONE [Concomitant]
  7. OXYGEN [Concomitant]
  8. ASTELIN [Concomitant]
  9. PEPCID [Concomitant]

REACTIONS (2)
  - FATIGUE [None]
  - HAEMOPTYSIS [None]
